FAERS Safety Report 5755837-3 (Version None)
Quarter: 2008Q2

REPORT INFORMATION
  Report Type: 
  Country: None (occurrence: None)
  Receive Date: 20080602
  Receipt Date: 20080523
  Transmission Date: 20081010
  Serious: Yes (Other)
  Sender: FDA-Public Use
  Company Number: A0730553A

PATIENT
  Age: 59 Year
  Sex: Male

DRUGS (2)
  1. PAXIL [Suspect]
     Indication: DEPRESSION
     Dates: start: 19990101, end: 20070901
  2. UNKNOWN [Concomitant]

REACTIONS (5)
  - ABNORMAL BEHAVIOUR [None]
  - LIBIDO INCREASED [None]
  - LOSS OF EMPLOYMENT [None]
  - MANIA [None]
  - POLYDIPSIA [None]
